FAERS Safety Report 5963846-4 (Version None)
Quarter: 2008Q4

REPORT INFORMATION
  Report Type: 
  Country: None (occurrence: None)
  Receive Date: 20081124
  Receipt Date: 20081117
  Transmission Date: 20090506
  Serious: Yes (Hospitalization)
  Sender: FDA-Public Use
  Company Number: GB-TEVA-180987ISR

PATIENT

DRUGS (1)
  1. SALAMOL CFC-FREE INHALER [Suspect]
     Indication: ASTHMA
     Route: 055

REACTIONS (5)
  - CHEST PAIN [None]
  - CHOKING [None]
  - FOREIGN BODY TRAUMA [None]
  - ODYNOPHAGIA [None]
  - RETCHING [None]
